FAERS Safety Report 8546191-2 (Version None)
Quarter: 2012Q3

REPORT INFORMATION
  Report Type: 
  Country: None (occurrence: None)
  Receive Date: 20120727
  Receipt Date: 20120629
  Transmission Date: 20120928
  Serious: Yes (Hospitalization)
  Sender: FDA-Public Use
  Company Number: PHHO2011FR05656

PATIENT
  Sex: Male
  Weight: 81 kg

DRUGS (9)
  1. MYCOPHENOLIC ACID [Suspect]
     Indication: RENAL TRANSPLANT
     Dosage: 720 MG, BID
     Route: 048
     Dates: start: 20100812
  2. IMIPENEM AND CILASTATIN SODIUM [Suspect]
     Indication: DIARRHOEA
     Dosage: 100 MG, BID
     Dates: start: 20110104, end: 20110123
  3. NEORAL [Suspect]
     Indication: RENAL TRANSPLANT
     Dosage: 100 MG, BID
     Route: 048
     Dates: start: 20100813
  4. PREDNISONE [Suspect]
     Indication: RENAL TRANSPLANT
     Dosage: 10 MG, UNK
     Route: 048
     Dates: start: 20100817
  5. HYPERIUM [Concomitant]
     Indication: HYPERTENSION
  6. NEBIVOLOL HCL [Concomitant]
     Indication: HYPERTENSION
  7. PRAVASTATIN [Concomitant]
     Indication: DYSLIPIDAEMIA
  8. CELLCEPT [Concomitant]
     Indication: RENAL TRANSPLANT
  9. NEORECORMON [Concomitant]
     Indication: ANAEMIA

REACTIONS (3)
  - DIARRHOEA [None]
  - STATUS EPILEPTICUS [None]
  - BACTERIAL PYELONEPHRITIS [None]
